FAERS Safety Report 9486052 (Version 2)
Quarter: 2013Q3

REPORT INFORMATION
  Report Type: Spontaneous
  Country: US (occurrence: None)
  Receive Date: 20130826
  Receipt Date: 20130913
  Transmission Date: 20140515
  Serious: Yes (Other)
  Sender: FDA-Public Use
  Company Number: SYM-2013-09131

PATIENT
  Age: 60 Year
  Sex: Female

DRUGS (5)
  1. WELLBUTRIN [Suspect]
     Indication: DEPRESSION
     Route: 048
     Dates: start: 2011, end: 201305
  2. ZOLOFT [Suspect]
     Indication: DEPRESSION
     Dates: start: 2011, end: 201305
  3. ASPIRIN (ACETYLSALICYLIC ACID) (ACEYTL SALICYLIC ACID) [Concomitant]
  4. PRAVASTATIN (PRAVASTATIN) (PRAVASTATIN) [Concomitant]
  5. VENLAFAXINE (VENLAFAXINE HYDROCHLORIDE) (VENLAFAXINE HYDROCHLORIDE) [Concomitant]

REACTIONS (7)
  - Depression [None]
  - Drug ineffective [None]
  - Loss of consciousness [None]
  - Dizziness [None]
  - Weight decreased [None]
  - Myocardial infarction [None]
  - Stress [None]
